FAERS Safety Report 9210076 (Version 1)
Quarter: 2013Q2

REPORT INFORMATION
  Report Type: Spontaneous
  Country: US (occurrence: US)
  Receive Date: 20130404
  Receipt Date: 20130404
  Transmission Date: 20140414
  Serious: No
  Sender: FDA-Public Use
  Company Number: US-ASTELLAS-2013US003281

PATIENT
  Age: 76 Year
  Sex: Male

DRUGS (1)
  1. MYRBETRIQ [Suspect]
     Indication: NOCTURIA
     Dosage: 25 MG, UNKNOWN/D
     Route: 048
     Dates: start: 201303

REACTIONS (1)
  - Drug ineffective for unapproved indication [Unknown]
